FAERS Safety Report 7469667-8 (Version None)
Quarter: 2011Q2

REPORT INFORMATION
  Report Type: 
  Country: None (occurrence: None)
  Receive Date: 20110510
  Receipt Date: 20110504
  Transmission Date: 20111010
  Serious: Yes (Hospitalization)
  Sender: FDA-Public Use
  Company Number: US-GILEAD-2011-0038761

PATIENT
  Sex: Female
  Weight: 107.14 kg

DRUGS (8)
  1. AMLODIPINE BESYLATE [Concomitant]
  2. WARFARIN [Concomitant]
  3. LETAIRIS [Suspect]
     Indication: PULMONARY HYPERTENSION
     Route: 048
     Dates: start: 20100412, end: 20110304
  4. GLIPIZIDE [Concomitant]
  5. FUROSEMIDE [Concomitant]
  6. POTASSIUM [Concomitant]
  7. TRAMADOL HCL [Concomitant]
  8. OXYGEN [Concomitant]

REACTIONS (5)
  - CELLULITIS [None]
  - PLEURAL EFFUSION [None]
  - HYPOXIA [None]
  - FLUID OVERLOAD [None]
  - OEDEMA PERIPHERAL [None]
